FAERS Safety Report 10648039 (Version 3)
Quarter: 2014Q4

REPORT INFORMATION
  Report Type: Report from Study
  Country: CA (occurrence: CA)
  Receive Date: 20141212
  Receipt Date: 20141223
  Transmission Date: 20150529
  Serious: Yes (Hospitalization, Other)
  Sender: FDA-Public Use
  Company Number: CA-AMGEN-CANSL2014085844

PATIENT
  Age: 51 Year
  Sex: Female

DRUGS (3)
  1. CYCLOPHOSPHAMIDE. [Concomitant]
     Active Substance: CYCLOPHOSPHAMIDE
  2. NPLATE [Suspect]
     Active Substance: ROMIPLOSTIM
     Indication: IMMUNE THROMBOCYTOPENIC PURPURA
     Dosage: UNK
     Route: 065
     Dates: start: 20141028
  3. DANAZOL. [Concomitant]
     Active Substance: DANAZOL

REACTIONS (6)
  - Platelet count decreased [Not Recovered/Not Resolved]
  - Drug ineffective [Unknown]
  - Post procedural complication [Unknown]
  - Hospitalisation [Not Recovered/Not Resolved]
  - Splenectomy [Unknown]
  - Haemorrhage [Not Recovered/Not Resolved]

NARRATIVE: CASE EVENT DATE: 20141028
